FAERS Safety Report 8062186-X (Version None)
Quarter: 2012Q1

REPORT INFORMATION
  Report Type: 
  Country: None (occurrence: None)
  Receive Date: 20120123
  Receipt Date: 20120113
  Transmission Date: 20120608
  Serious: Yes (Life-Threatening, Hospitalization)
  Sender: FDA-Public Use
  Company Number: JP-BRISTOL-MYERS SQUIBB COMPANY-16293060

PATIENT
  Age: 71 Year
  Sex: Male

DRUGS (10)
  1. DIOVAN [Concomitant]
     Indication: HYPERTENSION
     Route: 048
     Dates: start: 20110411, end: 20111124
  2. ASPIRIN [Concomitant]
     Indication: MYOCARDIAL INFARCTION
     Route: 048
  3. LANSOPRAZOLE [Concomitant]
     Indication: GASTROOESOPHAGEAL REFLUX DISEASE
     Route: 048
     Dates: start: 20080326
  4. AMLODIPINE [Concomitant]
     Indication: HYPERTENSION
     Route: 048
     Dates: end: 20111123
  5. EXFORGE [Concomitant]
     Indication: HYPERTENSION
     Route: 048
     Dates: start: 20110411, end: 20111124
  6. LIPITOR [Concomitant]
     Indication: HYPERLIPIDAEMIA
     Route: 048
  7. HALCION [Concomitant]
     Indication: INSOMNIA
     Route: 048
     Dates: start: 20030607
  8. CANDESARTAN CILEXETIL [Concomitant]
     Indication: HYPERTENSION
     Route: 048
     Dates: start: 20080326, end: 20110411
  9. METFORMIN HCL [Concomitant]
     Indication: TYPE 2 DIABETES MELLITUS
     Dosage: 250MG:16APR09-29JUN09, 500MG:29JUN09-04JUL11.
     Route: 048
     Dates: start: 20090416, end: 20090704
  10. METFORMIN HCL [Suspect]
     Indication: TYPE 2 DIABETES MELLITUS
     Dosage: 500MG IN THE MORNING AND 250MG IN THE EVENING
     Route: 048
     Dates: start: 20110704, end: 20111123

REACTIONS (2)
  - HYPOGLYCAEMIA [None]
  - METABOLIC ACIDOSIS [None]
